FAERS Safety Report 21006291 (Version 3)
Quarter: 2023Q2

REPORT INFORMATION
  Report Type: Spontaneous
  Country: RO (occurrence: RO)
  Receive Date: 20220624
  Receipt Date: 20230511
  Transmission Date: 20230722
  Serious: Yes (Death, Other)
  Sender: FDA-Public Use
  Company Number: RO-TAKEDA-2022TUS035812

PATIENT
  Age: 64 Year
  Sex: Male

DRUGS (11)
  1. HUMAN IMMUNOGLOBULIN G [Suspect]
     Active Substance: HUMAN IMMUNOGLOBULIN G
     Indication: Thrombocytopenia
     Dosage: UNK
     Route: 065
  2. HUMAN IMMUNOGLOBULIN G [Suspect]
     Active Substance: HUMAN IMMUNOGLOBULIN G
     Indication: Plasma cell myeloma
  3. BORTEZOMIB [Suspect]
     Active Substance: BORTEZOMIB
     Indication: Plasma cell myeloma
     Dosage: UNK
     Route: 065
  4. DEXAMETHASONE [Suspect]
     Active Substance: DEXAMETHASONE
     Indication: Plasma cell myeloma
     Dosage: UNK
     Route: 065
  5. CYCLOPHOSPHAMIDE [Suspect]
     Active Substance: CYCLOPHOSPHAMIDE
     Indication: Plasma cell myeloma
     Dosage: UNK
     Route: 065
  6. LENALIDOMIDE [Suspect]
     Active Substance: LENALIDOMIDE
     Indication: Plasma cell myeloma
     Dosage: UNK
     Route: 065
  7. IXAZOMIB [Concomitant]
     Active Substance: IXAZOMIB
     Indication: Haemophagocytic lymphohistiocytosis
     Route: 065
  8. IXAZOMIB [Concomitant]
     Active Substance: IXAZOMIB
     Indication: Acute hepatic failure
  9. DEXAMETHASONE;LENALIDOMIDE [Concomitant]
     Indication: Haemophagocytic lymphohistiocytosis
     Dosage: UNK
     Route: 065
  10. DEXAMETHASONE;LENALIDOMIDE [Concomitant]
     Indication: Acute hepatic failure
  11. CYCLOPHOSPHAMIDE;DEXAMETHASONE [Concomitant]
     Indication: Plasma cell myeloma
     Route: 065

REACTIONS (11)
  - Acute hepatic failure [Fatal]
  - Haemophagocytic lymphohistiocytosis [Fatal]
  - Coagulopathy [Not Recovered/Not Resolved]
  - Thrombocytopenia [Not Recovered/Not Resolved]
  - Hyperferritinaemia [Not Recovered/Not Resolved]
  - Hypofibrinogenaemia [Not Recovered/Not Resolved]
  - Jaundice [Not Recovered/Not Resolved]
  - Fatigue [Not Recovered/Not Resolved]
  - Erythema [Not Recovered/Not Resolved]
  - Off label use [Unknown]
  - Drug ineffective [Unknown]
